FAERS Safety Report 24107891 (Version 1)
Quarter: 2024Q3

REPORT INFORMATION
  Report Type: Spontaneous
  Country: DK (occurrence: DK)
  Receive Date: 20240718
  Receipt Date: 20240718
  Transmission Date: 20241016
  Serious: Yes (Hospitalization)
  Sender: MERCK
  Company Number: None

PATIENT
  Age: 60 Year
  Sex: Female

DRUGS (4)
  1. KEYTRUDA [Suspect]
     Active Substance: PEMBROLIZUMAB
     Indication: Breast cancer
     Dosage: DOSAGE: UNKNOWN.
     Route: 042
     Dates: start: 20230810, end: 202310
  2. PACLITAXEL [Concomitant]
     Active Substance: PACLITAXEL
     Dosage: DOSAGE UNKNOWN
     Dates: start: 20230629, end: 20231005
  3. CYCLOPHOSPHAMIDE [Concomitant]
     Active Substance: CYCLOPHOSPHAMIDE
     Dosage: DOSAGE UNKNOWN
     Dates: start: 20231012, end: 20231102
  4. CARBOPLATIN [Concomitant]
     Active Substance: CARBOPLATIN
     Dosage: DOSAGE UNKNOWN
     Dates: start: 20230810, end: 20230921

REACTIONS (1)
  - Platelet count decreased [Recovered/Resolved]

NARRATIVE: CASE EVENT DATE: 20231212
